FAERS Safety Report 9880291 (Version 2)
Quarter: 2014Q1

REPORT INFORMATION
  Report Type: Spontaneous
  Country: AE (occurrence: AE)
  Receive Date: 20140207
  Receipt Date: 20140314
  Transmission Date: 20141002
  Serious: Yes (Death, Hospitalization)
  Sender: FDA-Public Use
  Company Number: AE-AMGEN-ARESP2014008576

PATIENT
  Age: 64 Year
  Sex: Female

DRUGS (4)
  1. ENBREL [Suspect]
     Indication: RHEUMATOID ARTHRITIS
     Dosage: 50 MG, WEEKLY
     Route: 058
     Dates: start: 2010, end: 20140112
  2. ACLASTA [Suspect]
     Indication: OSTEOPOROSIS
     Dosage: ONCE/YEAR
     Route: 042
     Dates: end: 20131229
  3. METHOTREXATE [Concomitant]
     Dosage: 10 MG, WEEKLY
     Route: 048
     Dates: start: 2010, end: 201401
  4. FOLIC ACID [Concomitant]
     Dosage: 5 MG, 2X/WEEK
     Route: 048

REACTIONS (11)
  - Renal failure acute [Unknown]
  - Rash [Unknown]
  - Blood creatine increased [Unknown]
  - Aphagia [Unknown]
  - Abasia [Unknown]
  - Aphonia [Unknown]
  - Malaise [Unknown]
  - Sepsis [Fatal]
  - Pancytopenia [Unknown]
  - Leukopenia [Unknown]
  - Thrombocytopenia [Unknown]
